FAERS Safety Report 9372340 (Version 2)
Quarter: 2013Q3

REPORT INFORMATION
  Report Type: Report from Study
  Country: CA (occurrence: CA)
  Receive Date: 20130627
  Receipt Date: 20130701
  Transmission Date: 20140515
  Serious: Yes (Death)
  Sender: FDA-Public Use
  Company Number: PHHY2013CA066084

PATIENT
  Age: 86 Year
  Sex: Male

DRUGS (3)
  1. ACLASTA [Suspect]
     Indication: OSTEOPOROSIS
     Dosage: UNK
     Route: 042
     Dates: start: 20100604
  2. ACLASTA [Suspect]
     Dosage: UNK
     Route: 042
     Dates: start: 20110824
  3. ACLASTA [Suspect]
     Dosage: UNK
     Route: 042
     Dates: start: 20120920

REACTIONS (1)
  - Death [Fatal]
